FAERS Safety Report 4467745-9 (Version None)
Quarter: 2004Q4

REPORT INFORMATION
  Report Type: 
  Country: None (occurrence: None)
  Receive Date: 20041001
  Receipt Date: 20040920
  Transmission Date: 20050328
  Serious: Yes (Life-Threatening, Hospitalization, Other)
  Sender: FDA-Public Use
  Company Number: 2004068266

PATIENT
  Age: 71 Year
  Sex: Female

DRUGS (1)
  1. RELPAX [Suspect]
     Indication: MIGRAINE
     Dosage: 40 MG (40 MG, 1 IN 1 D)
     Dates: start: 20040710, end: 20040710

REACTIONS (2)
  - ANGINA UNSTABLE [None]
  - TROPONIN INCREASED [None]
